FAERS Safety Report 9170539 (Version 1)
Quarter: 2013Q1

REPORT INFORMATION
  Report Type: Spontaneous
  Country: US (occurrence: None)
  Receive Date: 20130312
  Receipt Date: 20130312
  Transmission Date: 20140127
  Serious: Yes (Other)
  Sender: FDA-Public Use
  Company Number: SYM-2013-01498

PATIENT
  Sex: Female

DRUGS (1)
  1. WELLBUTRIN (BUPROPION HYDROCHLORIDE) (TABLETS) (BUPROPION HYDROCHLORIDE) [Suspect]
     Indication: PRODUCT USED FOR UNKNOWN INDICATION

REACTIONS (5)
  - Vaginal haemorrhage [None]
  - Salpingitis [None]
  - Discomfort [None]
  - Urine odour abnormal [None]
  - Mood swings [None]
